FAERS Safety Report 18628166 (Version 1)
Quarter: 2020Q4

REPORT INFORMATION
  Report Type: Spontaneous
  Country: US (occurrence: US)
  Receive Date: 20201217
  Receipt Date: 20201217
  Transmission Date: 20210114
  Serious: No
  Sender: FDA-Public Use
  Company Number: US-RECORDATI RARE DISEASES-2103121

PATIENT
  Age: 52 Year
  Sex: Female

DRUGS (1)
  1. ISTURISA [Suspect]
     Active Substance: OSILODROSTAT PHOSPHATE
     Indication: PITUITARY-DEPENDENT CUSHING^S SYNDROME
     Dates: start: 20200910

REACTIONS (9)
  - Fatigue [Unknown]
  - Blood pressure increased [Unknown]
  - Muscular weakness [Unknown]
  - Heart rate irregular [Unknown]
  - Weight increased [Unknown]
  - Asthenia [Unknown]
  - Hyperadrenocorticism [Unknown]
  - Peripheral swelling [Unknown]
  - Dizziness [Unknown]

NARRATIVE: CASE EVENT DATE: 2020
